FAERS Safety Report 10164037 (Version 2)
Quarter: 2014Q2

REPORT INFORMATION
  Report Type: Spontaneous
  Country: US (occurrence: US)
  Receive Date: 20140510
  Receipt Date: 20140510
  Transmission Date: 20141212
  Serious: No
  Sender: FDA-Public Use
  Company Number: US-BRISTOL-MYERS SQUIBB COMPANY-19841287

PATIENT
  Age: 61 Year
  Sex: Female
  Weight: 97.5 kg

DRUGS (4)
  1. BYETTA [Suspect]
     Indication: TYPE 2 DIABETES MELLITUS
     Dosage: PRESCRIPTION#127 929845
     Route: 058
     Dates: start: 20130930
  2. APIDRA [Concomitant]
     Indication: TYPE 2 DIABETES MELLITUS
  3. METFORMIN [Concomitant]
     Indication: TYPE 2 DIABETES MELLITUS
  4. GLIPIZIDE [Concomitant]
     Indication: TYPE 2 DIABETES MELLITUS

REACTIONS (1)
  - Intercepted medication error [Unknown]
